FAERS Safety Report 6376184-5 (Version None)
Quarter: 2009Q3

REPORT INFORMATION
  Report Type: 
  Country: None (occurrence: None)
  Receive Date: 20090918
  Receipt Date: 20090727
  Transmission Date: 20100115
  Serious: Yes (Hospitalization)
  Sender: FDA-Public Use
  Company Number: DSA_41650_2009

PATIENT
  Sex: Female

DRUGS (11)
  1. DILTIAZEM HYDROCHLORIDE [Suspect]
     Indication: HYPERTENSION
     Dosage: (ORAL)
     Route: 048
     Dates: start: 20090428, end: 20090428
  2. ALDACTAZINE (SPIRONOLACTONE/ALTIZIDE) [Suspect]
     Dosage: (DF ORAL)
     Route: 048
     Dates: start: 20090428, end: 20090428
  3. ACETAMINOPHEN W/ PROPOXYPHENE HCL [Suspect]
     Indication: DRUG USE FOR UNKNOWN INDICATION
     Dosage: (1 DF }QID ORAL)
     Route: 048
     Dates: start: 20090101, end: 20090507
  4. TRAMADOL HCL [Suspect]
     Indication: DRUG USE FOR UNKNOWN INDICATION
     Dosage: (100 MG BID ORAL)
     Route: 048
     Dates: start: 20090101, end: 20090507
  5. LOXEN [Concomitant]
  6. AMIODARONE [Concomitant]
  7. DAFLON /00426001/ [Concomitant]
  8. SPIRIVA [Concomitant]
  9. SERETIDE /01434201/ [Concomitant]
  10. VENTOLIN [Concomitant]
  11. OXYGEN (UNKNOWN) [Concomitant]

REACTIONS (4)
  - DERMATITIS [None]
  - DRUG ERUPTION [None]
  - EOSINOPHILIA [None]
  - INSOMNIA [None]
